FAERS Safety Report 10049034 (Version 2)
Quarter: 2014Q2

REPORT INFORMATION
  Report Type: Spontaneous
  Country: DE (occurrence: DE)
  Receive Date: 20140331
  Receipt Date: 20140513
  Transmission Date: 20141212
  Serious: Yes (Hospitalization, Other)
  Sender: FDA-Public Use
  Company Number: DE-009507513-1403DEU013977

PATIENT
  Age: 50 Year
  Sex: Female
  Weight: 55 kg

DRUGS (4)
  1. IMPLANON [Suspect]
     Indication: CONTRACEPTION
     Dosage: UNK
     Route: 059
  2. IMPLANON [Suspect]
     Dosage: UNK
     Route: 058
     Dates: start: 20090613, end: 20140428
  3. L-THYROXIN [Concomitant]
  4. PANTOZOL [Concomitant]

REACTIONS (7)
  - Invasive lobular breast carcinoma [Unknown]
  - Metastases to bone marrow [Unknown]
  - Medical device complication [Unknown]
  - Incorrect drug administration duration [Unknown]
  - Device difficult to use [Recovered/Resolved]
  - Device deployment issue [Unknown]
  - Metastatic malignant melanoma [Unknown]
